FAERS Safety Report 5614486-8 (Version None)
Quarter: 2008Q1

REPORT INFORMATION
  Report Type: 
  Country: None (occurrence: None)
  Receive Date: 20080130
  Receipt Date: 20080122
  Transmission Date: 20080703
  Serious: Yes (Death, Congenital Anomaly)
  Sender: FDA-Public Use
  Company Number: 230799J08USA

PATIENT
  Sex: Male
  Weight: 2.7669 kg

DRUGS (8)
  1. REBIF [Suspect]
     Indication: MULTIPLE SCLEROSIS
     Dosage: TRANSPLACENTAL
     Route: 064
     Dates: end: 20070526
  2. NEURONTIN [Suspect]
     Indication: MULTIPLE SCLEROSIS
     Dosage: TRANSPLACENTAL
     Route: 064
     Dates: end: 20070526
  3. NEURONTIN [Suspect]
     Indication: PAIN
     Dosage: TRANSPLACENTAL
     Route: 064
     Dates: end: 20070526
  4. DITROPAN [Suspect]
     Indication: INCONTINENCE
     Dosage: TRANSPLACENTAL
     Route: 064
     Dates: end: 20070526
  5. DITROPAN [Suspect]
     Indication: MULTIPLE SCLEROSIS
     Dosage: TRANSPLACENTAL
     Route: 064
     Dates: end: 20070526
  6. PROVIGIL [Suspect]
     Indication: FATIGUE
     Dosage: TRANSPLACENTAL
     Route: 064
     Dates: end: 20070526
  7. CRESTOR [Suspect]
     Indication: BLOOD CHOLESTEROL INCREASED
     Dosage: TRANSPLACENTAL
     Route: 064
     Dates: end: 20070526
  8. GLUCOVANCE [Suspect]
     Indication: DIABETES MELLITUS
     Dosage: TRANSPLACENTAL
     Route: 064
     Dates: end: 20070526

REACTIONS (11)
  - BONE DISORDER [None]
  - CAESAREAN SECTION [None]
  - DEATH NEONATAL [None]
  - DRUG EXPOSURE DURING PREGNANCY [None]
  - LOWER LIMB DEFORMITY [None]
  - LUNG DISORDER [None]
  - PREGNANCY [None]
  - PREMATURE BABY [None]
  - SKIN DISCOLOURATION [None]
  - SPINAL DEFORMITY [None]
  - TALIPES [None]
